FAERS Safety Report 9838265 (Version 1)
Quarter: 2014Q1

REPORT INFORMATION
  Report Type: Spontaneous
  Country: JP (occurrence: JP)
  Receive Date: 20140123
  Receipt Date: 20140123
  Transmission Date: 20141002
  Serious: Yes (Hospitalization, Other)
  Sender: FDA-Public Use
  Company Number: JP-PFIZER INC-2014019835

PATIENT
  Age: 82 Year
  Sex: Male

DRUGS (1)
  1. AMLODIN [Suspect]
     Indication: HYPERTENSION
     Dosage: UNK
     Route: 048

REACTIONS (2)
  - Atrioventricular block second degree [Unknown]
  - Atrioventricular block complete [Unknown]
